FAERS Safety Report 25383824 (Version 1)
Quarter: 2025Q2

REPORT INFORMATION
  Report Type: Spontaneous
  Country: GB (occurrence: GB)
  Receive Date: 20250602
  Receipt Date: 20250602
  Transmission Date: 20250717
  Serious: Yes (Other)
  Sender: NOVARTIS
  Company Number: GB-002147023-NVSC2025GB082998

PATIENT
  Sex: Female

DRUGS (1)
  1. MAYZENT [Suspect]
     Active Substance: SIPONIMOD
     Indication: Multiple sclerosis
     Route: 065
     Dates: start: 202310

REACTIONS (6)
  - Toxic encephalopathy [Unknown]
  - Multiple sclerosis [Unknown]
  - Mental status changes [Unknown]
  - Disinhibition [Unknown]
  - Self-injurious ideation [Unknown]
  - Drug ineffective [Unknown]
